FAERS Safety Report 21584621 (Version 1)
Quarter: 2022Q4

REPORT INFORMATION
  Report Type: Spontaneous
  Country: US (occurrence: US)
  Receive Date: 20221111
  Receipt Date: 20221111
  Transmission Date: 20230113
  Serious: No
  Sender: FDA-Public Use
  Company Number: US-MIRM-000637

PATIENT

DRUGS (1)
  1. MARALIXIBAT CHLORIDE [Suspect]
     Active Substance: MARALIXIBAT CHLORIDE
     Indication: Product used for unknown indication
     Route: 048

REACTIONS (3)
  - Alanine aminotransferase increased [Unknown]
  - Aspartate aminotransferase increased [Unknown]
  - Gamma-glutamyltransferase increased [Unknown]
